FAERS Safety Report 10205616 (Version 2)
Quarter: 2014Q2

REPORT INFORMATION
  Report Type: Spontaneous
  Country: GB (occurrence: GB)
  Receive Date: 20140529
  Receipt Date: 20140623
  Transmission Date: 20141212
  Serious: Yes (Death)
  Sender: FDA-Public Use
  Company Number: PHFR2014GB003808

PATIENT
  Age: 56 Year
  Sex: Female

DRUGS (5)
  1. CLOZARIL [Suspect]
     Indication: SCHIZOPHRENIA
     Dosage: 375 MG, UNK
     Route: 048
     Dates: start: 20050418
  2. METFORMIN [Concomitant]
     Dosage: 2000 MG, UNK
     Route: 048
  3. ATORVASTATIN [Concomitant]
     Dosage: 80 MG, UNK
     Route: 048
  4. PIOGLITAZONE [Concomitant]
     Dosage: 45 MG, UNK
     Route: 048
  5. OMEPRAZOLE [Concomitant]
     Dosage: 20 MG, UNK
     Route: 048

REACTIONS (2)
  - Hypertensive heart disease [Fatal]
  - Neutrophil count increased [Unknown]
